FAERS Safety Report 16149323 (Version 1)
Quarter: 2019Q2

REPORT INFORMATION
  Report Type: Spontaneous
  Country: SE (occurrence: SE)
  Receive Date: 20190402
  Receipt Date: 20190402
  Transmission Date: 20190711
  Serious: Yes (Hospitalization)
  Sender: FDA-Public Use
  Company Number: SE-FERRINGPH-1998FE00647

PATIENT

DRUGS (1)
  1. MINIRIN [Suspect]
     Active Substance: DESMOPRESSIN ACETATE
     Indication: ENURESIS
     Dosage: UNK
     Route: 045

REACTIONS (2)
  - Hyponatraemia [Unknown]
  - Brain oedema [Unknown]

NARRATIVE: CASE EVENT DATE: 1998
